FAERS Safety Report 25196575 (Version 1)
Quarter: 2025Q2

REPORT INFORMATION
  Report Type: Report from Study
  Country: NL (occurrence: NL)
  Receive Date: 20250415
  Receipt Date: 20250415
  Transmission Date: 20250716
  Serious: Yes (Hospitalization, Other)
  Sender: CELLTRION
  Company Number: NL-BEH-2024167836

PATIENT

DRUGS (17)
  1. INFLIXIMAB [Suspect]
     Active Substance: INFLIXIMAB
     Indication: Off label use
     Dates: start: 20211201
  2. INFLIXIMAB [Suspect]
     Active Substance: INFLIXIMAB
  3. RITUXIMAB [Suspect]
     Active Substance: RITUXIMAB
     Indication: Product used for unknown indication
  4. PRIVIGEN [Suspect]
     Active Substance: HUMAN IMMUNOGLOBULIN G
     Indication: Susac^s syndrome
     Dates: start: 20231213, end: 20231216
  5. PRIVIGEN [Suspect]
     Active Substance: HUMAN IMMUNOGLOBULIN G
     Indication: Off label use
     Dosage: 3 DAYS 25 GR/D EVERY 4 WEEKS
     Route: 042
     Dates: start: 20231213
  6. PRIVIGEN [Suspect]
     Active Substance: HUMAN IMMUNOGLOBULIN G
     Dosage: 75 GRAM, QMT (3 ADMINISTRATIONS OF 25G PER 4 WEEKS)
     Route: 042
     Dates: start: 20240117
  7. PRIVIGEN [Suspect]
     Active Substance: HUMAN IMMUNOGLOBULIN G
     Route: 042
  8. PRIVIGEN [Suspect]
     Active Substance: HUMAN IMMUNOGLOBULIN G
     Route: 042
  9. PRIVIGEN [Suspect]
     Active Substance: HUMAN IMMUNOGLOBULIN G
     Dosage: 75 GRAM, QMT (3 ADMINISTRATIONS OF 25G PER 4 WEEKS)
     Route: 042
     Dates: start: 20240214
  10. PRIVIGEN [Suspect]
     Active Substance: HUMAN IMMUNOGLOBULIN G
     Route: 042
  11. PRIVIGEN [Suspect]
     Active Substance: HUMAN IMMUNOGLOBULIN G
     Route: 042
  12. PRIVIGEN [Suspect]
     Active Substance: HUMAN IMMUNOGLOBULIN G
     Dosage: 75 GRAM, QMT (3 ADMINISTRATIONS OF 25G PER 4 WEEKS)
     Route: 042
     Dates: start: 20240215
  13. PRIVIGEN [Suspect]
     Active Substance: HUMAN IMMUNOGLOBULIN G
     Route: 042
  14. PRIVIGEN [Suspect]
     Active Substance: HUMAN IMMUNOGLOBULIN G
     Route: 042
     Dates: start: 202403
  15. PRIVIGEN [Suspect]
     Active Substance: HUMAN IMMUNOGLOBULIN G
     Dosage: 3 ADMINISTRATIONS OF 25G PER 4 WEEKS
     Route: 042
     Dates: start: 202403
  16. PRIVIGEN [Suspect]
     Active Substance: HUMAN IMMUNOGLOBULIN G
     Route: 042
     Dates: start: 202403
  17. PRIVIGEN [Suspect]
     Active Substance: HUMAN IMMUNOGLOBULIN G
     Route: 042
     Dates: start: 202403

REACTIONS (19)
  - Eye disorder [Recovering/Resolving]
  - Foetal growth abnormality [Unknown]
  - Susac^s syndrome [Recovering/Resolving]
  - Hypersomnia [Unknown]
  - Malaise [Recovered/Resolved]
  - Seasonal allergy [Unknown]
  - Upper respiratory tract inflammation [Recovered/Resolved]
  - Uterine contractions during pregnancy [Unknown]
  - Confusional state [Unknown]
  - Cough [Recovered/Resolved]
  - Fatigue [Unknown]
  - Injection site pain [Not Recovered/Not Resolved]
  - Memory impairment [Unknown]
  - Nasopharyngitis [Unknown]
  - Nausea [Unknown]
  - Pyrexia [Recovered/Resolved]
  - Maternal exposure during pregnancy [Unknown]
  - Off label use [Unknown]
  - Off label use [Unknown]

NARRATIVE: CASE EVENT DATE: 20240111
